FAERS Safety Report 8048564-3 (Version None)
Quarter: 2012Q1

REPORT INFORMATION
  Report Type: 
  Country: None (occurrence: None)
  Receive Date: 20120110
  Receipt Date: 20120103
  Transmission Date: 20120608
  Serious: Yes (Hospitalization, Other)
  Sender: FDA-Public Use
  Company Number: 09-AUR-09130

PATIENT
  Age: 37 Year
  Sex: Male

DRUGS (4)
  1. LINEZOLID [Suspect]
     Indication: ABDOMINAL INFECTION
     Dosage: 1200 MG (600 MG,2 IN 1 D),INTRAVENOUS
     Route: 042
  2. LINEZOLID [Suspect]
     Indication: STAPHYLOCOCCAL INFECTION
     Dosage: 1200 MG (600 MG,2 IN 1 D),INTRAVENOUS
     Route: 042
  3. CITALOPRAM HYDROBROMIDE [Suspect]
     Indication: PRODUCT USED FOR UNKNOWN INDICATION
     Dosage: 20 MG (20 MG,1 IN 1 D) ; 40 MG (40 MG,1 IN 1 D)
  4. METOCLOPRAMIDE [Concomitant]

REACTIONS (8)
  - DISEASE RECURRENCE [None]
  - STAPHYLOCOCCAL INFECTION [None]
  - SEROTONIN SYNDROME [None]
  - MYOCLONUS [None]
  - TREMOR [None]
  - ABDOMINAL ABSCESS [None]
  - ABDOMINAL INFECTION [None]
  - DRUG INTERACTION [None]
